FAERS Safety Report 23646927 (Version 1)
Quarter: 2024Q1

REPORT INFORMATION
  Report Type: Spontaneous
  Country: DK (occurrence: DK)
  Receive Date: 20240319
  Receipt Date: 20240319
  Transmission Date: 20240410
  Serious: Yes (Hospitalization)
  Sender: FDA-Public Use
  Company Number: None

PATIENT
  Age: 90 Year
  Sex: Male
  Weight: 60 kg

DRUGS (6)
  1. FUROSEMIDE [Suspect]
     Active Substance: FUROSEMIDE
     Indication: Oedema due to cardiac disease
     Dosage: STRENGTH: 10 MG/ML.?DOSE: ON 25JAN2024, 40MG X 2 WAS GIVEN. AFTER THAT DOSED AS NEEDED
     Dates: start: 20240125, end: 202401
  2. FUROSEMIDE [Suspect]
     Active Substance: FUROSEMIDE
     Indication: Oedema due to cardiac disease
     Dosage: STRENGTH: 40 MG.?DOSE: 80 MG IN THE MORNING AND 40 MG IN THE EVENING.
     Dates: start: 20240126, end: 20240206
  3. HYDROXOCOBALAMIN [Concomitant]
     Active Substance: HYDROXOCOBALAMIN
     Indication: Vitamin B12 deficiency
     Dates: start: 20180917
  4. SERETIDE [Concomitant]
     Active Substance: FLUTICASONE PROPIONATE\SALMETEROL XINAFOATE
     Indication: Lung disorder
     Dates: start: 20210920
  5. FINASTERIDE [Concomitant]
     Active Substance: FINASTERIDE
     Indication: Benign prostatic hyperplasia
     Dates: start: 20190720
  6. OLOPATADINE [Concomitant]
     Active Substance: OLOPATADINE
     Indication: Conjunctivitis allergic
     Dates: start: 20190719

REACTIONS (5)
  - Acute kidney injury [Unknown]
  - Orthostatic hypotension [Unknown]
  - Fall [Unknown]
  - Dehydration [Unknown]
  - Loss of consciousness [Unknown]

NARRATIVE: CASE EVENT DATE: 20240201
